FAERS Safety Report 6366472-0 (Version None)
Quarter: 2009Q3

REPORT INFORMATION
  Report Type: 
  Country: None (occurrence: None)
  Receive Date: 20090921
  Receipt Date: 20090909
  Transmission Date: 20100115
  Serious: Yes (Other)
  Sender: FDA-Public Use
  Company Number: US-ROCHE-656044

PATIENT
  Age: 52 Year
  Sex: Male

DRUGS (1)
  1. TAMIFLU [Suspect]
     Route: 048
     Dates: start: 20090830, end: 20090903

REACTIONS (11)
  - AMNESIA [None]
  - ASTHENIA [None]
  - CONVULSION [None]
  - DISTURBANCE IN ATTENTION [None]
  - DIZZINESS [None]
  - HEADACHE [None]
  - NAUSEA [None]
  - NIGHT SWEATS [None]
  - PYREXIA [None]
  - RASH ERYTHEMATOUS [None]
  - VISUAL IMPAIRMENT [None]
